FAERS Safety Report 15075228 (Version 1)
Quarter: 2018Q2

REPORT INFORMATION
  Report Type: Spontaneous
  Country: US (occurrence: US)
  Receive Date: 20180627
  Receipt Date: 20180627
  Transmission Date: 20180711
  Serious: Yes (Hospitalization, Other)
  Sender: FDA-Public Use
  Company Number: US-SAOL THERAPEUTICS-2017SAO03456

PATIENT
  Age: 39 Year
  Sex: Female

DRUGS (6)
  1. BACLOFEN. [Suspect]
     Active Substance: BACLOFEN
     Indication: MUSCLE SPASTICITY
     Dosage: 320 ?G, \DAY
     Route: 037
  2. FENTANYL. [Suspect]
     Active Substance: FENTANYL
     Dosage: 120 ?G, \DAY
     Route: 037
  3. BUPIVACAINE. [Suspect]
     Active Substance: BUPIVACAINE
     Dosage: 3.4 MG, \DAY
     Route: 037
  4. BACLOFEN. [Suspect]
     Active Substance: BACLOFEN
     Dosage: 120.31 ?G, \DAY
     Route: 037
  5. FENTANYL. [Suspect]
     Active Substance: FENTANYL
     Dosage: 60.08 ?G, \DAY
  6. BUPIVACAINE. [Suspect]
     Active Substance: BUPIVACAINE
     Dosage: UNK

REACTIONS (7)
  - Complication associated with device [Unknown]
  - Asthenia [Unknown]
  - Back pain [Unknown]
  - Drug withdrawal syndrome [Unknown]
  - Device infusion issue [Recovered/Resolved]
  - Therapy non-responder [Unknown]
  - Overdose [Recovered/Resolved]

NARRATIVE: CASE EVENT DATE: 2015
